FAERS Safety Report 5248556-3 (Version None)
Quarter: 2007Q1

REPORT INFORMATION
  Report Type: 
  Country: None (occurrence: None)
  Receive Date: 20070222
  Receipt Date: 20070212
  Transmission Date: 20070707
  Serious: Yes (Death, Disabling)
  Sender: FDA-Public Use
  Company Number: 2007SP002299

PATIENT
  Age: 53 Year
  Sex: Male

DRUGS (2)
  1. TEMODAL [Suspect]
     Indication: GLIOBLASTOMA MULTIFORME
     Dosage: PO
     Route: 048
     Dates: start: 20050201, end: 20050414
  2. GLIADEL [Suspect]
     Indication: GLIOBLASTOMA
     Dosage: 8 DF; ICB
     Dates: start: 20041210

REACTIONS (1)
  - HYDROCEPHALUS [None]
